FAERS Safety Report 8487862-6 (Version None)
Quarter: 2012Q3

REPORT INFORMATION
  Report Type: 
  Country: None (occurrence: None)
  Receive Date: 20120705
  Receipt Date: 20120622
  Transmission Date: 20120928
  Serious: Yes (Hospitalization)
  Sender: FDA-Public Use
  Company Number: SG-ELI_LILLY_AND_COMPANY-SG201206008044

PATIENT
  Age: 47 Year
  Sex: Male
  Weight: 72.8 kg

DRUGS (8)
  1. OTHER PHARMA COMPANY INV DRUG [Suspect]
     Indication: DIFFUSE LARGE B-CELL LYMPHOMA
     Dosage: 0.8 MG/M2, UNK
     Route: 042
     Dates: start: 20100831
  2. ACYCLOVIR [Concomitant]
     Dosage: UNK, UNKNOWN
     Route: 065
     Dates: start: 20100831
  3. SENNOSIDE A [Concomitant]
     Dosage: UNK, UNKNOWN
     Route: 065
  4. GEMCITABINE HYDROCHLORIDE [Suspect]
     Indication: DIFFUSE LARGE B-CELL LYMPHOMA
     Dosage: 500 MG/M2, UNK
     Route: 042
     Dates: start: 20100831
  5. FAMOTIDINE [Concomitant]
     Dosage: UNK, UNKNOWN
     Route: 065
     Dates: start: 20100831
  6. CISPLATIN [Suspect]
     Indication: DIFFUSE LARGE B-CELL LYMPHOMA
     Dosage: 50 MG/M2, UNK
     Route: 042
     Dates: start: 20100831
  7. RITUXIMAB [Suspect]
     Indication: DIFFUSE LARGE B-CELL LYMPHOMA
     Dosage: 375 MG/M2, UNK
     Route: 042
     Dates: start: 20100831
  8. DEXAMETHASONE SODIUM PHOSPHATE [Suspect]
     Indication: DIFFUSE LARGE B-CELL LYMPHOMA
     Dosage: 40 MG, FOR FOUR DAYS
     Route: 048
     Dates: start: 20100831

REACTIONS (1)
  - NEUTROPENIC SEPSIS [None]
